FAERS Safety Report 21452701 (Version 1)
Quarter: 2022Q4

REPORT INFORMATION
  Report Type: Other
  Country: US (occurrence: None)
  Receive Date: 20221013
  Receipt Date: 20221013
  Transmission Date: 20230113
  Serious: Yes (Hospitalization)
  Sender: FDA-Public Use
  Company Number: US-ROCHE-3195658

PATIENT
  Sex: Male
  Weight: 79.450 kg

DRUGS (6)
  1. OCREVUS [Suspect]
     Active Substance: OCRELIZUMAB
     Indication: Primary progressive multiple sclerosis
     Route: 042
     Dates: start: 2017
  2. OCREVUS [Suspect]
     Active Substance: OCRELIZUMAB
     Indication: Relapsing multiple sclerosis
  3. AMPYRA [Concomitant]
     Active Substance: DALFAMPRIDINE
  4. BACLOFEN [Concomitant]
     Active Substance: BACLOFEN
  5. CLARINEX [Concomitant]
     Active Substance: DESLORATADINE
  6. EVUSHELD [Concomitant]
     Active Substance: CILGAVIMAB\TIXAGEVIMAB

REACTIONS (3)
  - Septic shock [Recovered/Resolved]
  - Nail injury [Recovered/Resolved]
  - COVID-19 [Recovered/Resolved]

NARRATIVE: CASE EVENT DATE: 20181201
